FAERS Safety Report 13994357 (Version 1)
Quarter: 2017Q3

REPORT INFORMATION
  Report Type: Other
  Country: US (occurrence: US)
  Receive Date: 20170920
  Receipt Date: 20170920
  Transmission Date: 20171128
  Serious: Yes (Life-Threatening, Other)
  Sender: FDA-Public Use
  Company Number: US-INTERNATIONAL MEDICATION SYSTEMS, LIMITED-2027027

PATIENT
  Age: 40 Year
  Sex: Female

DRUGS (3)
  1. LIDOCAINE. [Suspect]
     Active Substance: LIDOCAINE
     Indication: VENTRICULAR TACHYCARDIA
  2. LIDOCAINE. [Suspect]
     Active Substance: LIDOCAINE
     Indication: TORSADE DE POINTES
  3. SODIUM BICARBONATE. [Suspect]
     Active Substance: SODIUM BICARBONATE

REACTIONS (1)
  - Drug ineffective [Recovered/Resolved]
